FAERS Safety Report 5049793-3 (Version None)
Quarter: 2006Q3

REPORT INFORMATION
  Report Type: 
  Country: None (occurrence: None)
  Receive Date: 20060707
  Receipt Date: 20060628
  Transmission Date: 20061208
  Serious: Yes (Other)
  Sender: FDA-Public Use
  Company Number: CHPA2006US06347

PATIENT
  Age: 59 Year
  Sex: Female
  Weight: 63.5 kg

DRUGS (2)
  1. EXCEDRIN EXTRA STRENGTH (NCH)(CAFFEINE CITRATE,ACETYLSALICYLIC ACID, A [Suspect]
     Indication: HEADACHE
     Dosage: 2 DF, BID, ORAL
     Route: 048
  2. EXCEDRIN EXTRA STRENGTH (NCH)(CAFFEINE CITRATE,ACETYLSALICYLIC ACID, A [Suspect]
     Dosage: 3-4 TIMES A WEEK, ORAL
     Route: 048

REACTIONS (3)
  - DRUG ABUSER [None]
  - DRUG DEPENDENCE [None]
  - THERAPEUTIC RESPONSE DECREASED [None]
